FAERS Safety Report 6782864-X (Version None)
Quarter: 2010Q2

REPORT INFORMATION
  Report Type: 
  Country: None (occurrence: None)
  Receive Date: 20100617
  Receipt Date: 20100604
  Transmission Date: 20101027
  Serious: Yes (Death, Life-Threatening, Hospitalization, Other)
  Sender: FDA-Public Use
  Company Number: 2009AC000532

PATIENT
  Age: 64 Year
  Sex: Female

DRUGS (25)
  1. DIGOXIN [Suspect]
     Dosage: PO
     Route: 048
     Dates: start: 20071201, end: 20090601
  2. DIGOXIN [Suspect]
     Dosage: 0.125 MG; ; PO
     Route: 048
     Dates: start: 19981030, end: 20071223
  3. ZYLOPRIM [Concomitant]
  4. TOPROL-XL [Concomitant]
  5. LIPITOR [Concomitant]
  6. TRICOR [Concomitant]
  7. LISINOPRIL [Concomitant]
  8. HCTZ [Concomitant]
  9. MAGNESIUM [Concomitant]
  10. XANAX [Concomitant]
  11. LANTUS [Concomitant]
  12. METFORMIN HCL [Concomitant]
  13. AMIODARONE HCL [Concomitant]
  14. LEVOPHED [Concomitant]
  15. MEXITIL [Concomitant]
  16. LIDOCAINE [Concomitant]
  17. KLONOPIN [Concomitant]
  18. LEXAPRO [Concomitant]
  19. PLAVIX [Concomitant]
  20. ASPIRIN [Concomitant]
  21. FUROSEMIDE [Concomitant]
  22. K-DUR [Concomitant]
  23. LOPRESSOR [Concomitant]
  24. AMARYL [Concomitant]
  25. AMBIEN [Concomitant]

REACTIONS (39)
  - ACUTE MYOCARDIAL INFARCTION [None]
  - AORTIC ARTERIOSCLEROSIS [None]
  - AORTIC VALVE INCOMPETENCE [None]
  - ARTERIAL DISORDER [None]
  - ASTHENIA [None]
  - ATRIOVENTRICULAR BLOCK FIRST DEGREE [None]
  - BLOOD CHOLESTEROL INCREASED [None]
  - BLOOD MAGNESIUM INCREASED [None]
  - BLOOD PRESSURE IMMEASURABLE [None]
  - BUNDLE BRANCH BLOCK LEFT [None]
  - CHOLELITHIASIS [None]
  - CORONARY ARTERY DISEASE [None]
  - DILATATION VENTRICULAR [None]
  - DYSPNOEA [None]
  - ECONOMIC PROBLEM [None]
  - EJECTION FRACTION DECREASED [None]
  - ELECTROCARDIOGRAM ST-T CHANGE [None]
  - FATIGUE [None]
  - FEAR [None]
  - HAEMATOCRIT DECREASED [None]
  - HAEMOGLOBIN DECREASED [None]
  - HEPATIC FAILURE [None]
  - HEPATIC STEATOSIS [None]
  - INFLUENZA LIKE ILLNESS [None]
  - ISCHAEMIC CARDIOMYOPATHY [None]
  - LEFT ATRIAL DILATATION [None]
  - LEFT VENTRICULAR DYSFUNCTION [None]
  - LEFT VENTRICULAR HYPERTROPHY [None]
  - MITRAL VALVE INCOMPETENCE [None]
  - MULTIPLE INJURIES [None]
  - NERVOUSNESS [None]
  - PULMONARY HYPERTENSION [None]
  - PULSE ABSENT [None]
  - REFUSAL OF TREATMENT BY PATIENT [None]
  - RENAL FAILURE [None]
  - THERAPEUTIC AGENT TOXICITY [None]
  - TRICUSPID VALVE INCOMPETENCE [None]
  - VENTRICULAR TACHYCARDIA [None]
  - WHITE BLOOD CELL COUNT INCREASED [None]
